FAERS Safety Report 7338424-5 (Version None)
Quarter: 2011Q1

REPORT INFORMATION
  Report Type: 
  Country: None (occurrence: None)
  Receive Date: 20110308
  Receipt Date: 20110225
  Transmission Date: 20110831
  Serious: Yes (Hospitalization)
  Sender: FDA-Public Use
  Company Number: MY-JNJFOC-20090406763

PATIENT
  Sex: Female
  Weight: 56 kg

DRUGS (52)
  1. GOLIMUMAB [Suspect]
     Indication: RHEUMATOID ARTHRITIS
     Route: 058
  2. GOLIMUMAB [Suspect]
     Route: 058
  3. GOLIMUMAB [Suspect]
     Route: 058
  4. GOLIMUMAB [Suspect]
     Route: 058
  5. GOLIMUMAB [Suspect]
     Route: 058
  6. GOLIMUMAB [Suspect]
     Route: 058
  7. PLACEBO [Suspect]
     Dosage: WEEK 32 - WEEK 60
     Route: 048
  8. PLACEBO [Suspect]
     Route: 048
  9. DAKTARIN [Concomitant]
     Route: 061
  10. OMEPRAZOLE [Concomitant]
     Route: 048
  11. GOLIMUMAB [Suspect]
     Route: 058
  12. GOLIMUMAB [Suspect]
     Route: 058
  13. GOLIMUMAB [Suspect]
     Route: 058
  14. GOLIMUMAB [Suspect]
     Route: 058
  15. GOLIMUMAB [Suspect]
     Route: 058
  16. GOLIMUMAB [Suspect]
     Route: 058
  17. PLACEBO [Suspect]
     Route: 048
  18. PLACEBO [Suspect]
     Dosage: WEEK 32 - WEEK 60
     Route: 048
  19. GOLIMUMAB [Suspect]
     Route: 058
  20. GOLIMUMAB [Suspect]
     Route: 058
  21. GOLIMUMAB [Suspect]
     Route: 058
  22. GOLIMUMAB [Suspect]
     Route: 058
  23. PLACEBO [Suspect]
     Indication: RHEUMATOID ARTHRITIS
     Route: 048
  24. PLACEBO [Suspect]
     Route: 048
  25. PLACEBO [Suspect]
     Route: 048
  26. GOLIMUMAB [Suspect]
     Route: 058
  27. GOLIMUMAB [Suspect]
     Route: 058
  28. GOLIMUMAB [Suspect]
     Route: 058
  29. GOLIMUMAB [Suspect]
     Route: 058
  30. GOLIMUMAB [Suspect]
     Route: 058
  31. FOLIC ACID [Concomitant]
     Route: 048
  32. GOLIMUMAB [Suspect]
     Route: 058
  33. GOLIMUMAB [Suspect]
     Route: 058
  34. GOLIMUMAB [Suspect]
     Route: 058
  35. PLACEBO [Suspect]
     Route: 048
  36. GOLIMUMAB [Suspect]
     Route: 058
  37. GOLIMUMAB [Suspect]
     Route: 058
  38. GOLIMUMAB [Suspect]
     Route: 058
  39. GOLIMUMAB [Suspect]
     Route: 058
  40. GOLIMUMAB [Suspect]
     Route: 058
  41. PLACEBO [Suspect]
     Route: 048
  42. ETORICOXIB [Concomitant]
     Route: 048
  43. GOLIMUMAB [Suspect]
     Route: 058
  44. GOLIMUMAB [Suspect]
     Route: 058
  45. GOLIMUMAB [Suspect]
     Route: 058
  46. LEVOTHYROXINE SODIUM [Concomitant]
     Route: 048
  47. NATURAL TEARS [Concomitant]
     Route: 061
  48. GOLIMUMAB [Suspect]
     Route: 058
  49. GOLIMUMAB [Suspect]
     Route: 058
  50. PLACEBO [Suspect]
     Route: 048
  51. PLACEBO [Suspect]
     Route: 048
  52. ASCORBIC ACID [Concomitant]
     Route: 048

REACTIONS (1)
  - ABSCESS LIMB [None]
